FAERS Safety Report 4889606-3 (Version None)
Quarter: 2006Q1

REPORT INFORMATION
  Report Type: 
  Country: None (occurrence: None)
  Receive Date: 20060120
  Receipt Date: 20060106
  Transmission Date: 20060701
  Serious: Yes (Hospitalization)
  Sender: FDA-Public Use
  Company Number: 2005-02587

PATIENT
  Age: 63 Year
  Sex: Female
  Weight: 53 kg

DRUGS (21)
  1. VELCADE [Suspect]
     Indication: MULTIPLE MYELOMA
     Dosage: SEE IMAGE
     Route: 042
     Dates: start: 20050715, end: 20050719
  2. VELCADE [Suspect]
     Indication: MULTIPLE MYELOMA
     Dosage: SEE IMAGE
     Route: 042
     Dates: start: 20050805, end: 20050815
  3. VELCADE [Suspect]
     Indication: MULTIPLE MYELOMA
     Dosage: SEE IMAGE
     Route: 042
     Dates: start: 20050826, end: 20050905
  4. VELCADE [Suspect]
     Indication: MULTIPLE MYELOMA
     Dosage: SEE IMAGE
     Route: 042
     Dates: start: 20050930, end: 20051011
  5. VELCADE [Suspect]
     Indication: MULTIPLE MYELOMA
     Dosage: SEE IMAGE
     Route: 042
     Dates: start: 20051104, end: 20051114
  6. VELCADE [Suspect]
     Indication: MULTIPLE MYELOMA
     Dosage: SEE IMAGE
     Route: 042
     Dates: start: 20051202, end: 20051212
  7. FOSAMAX [Concomitant]
  8. SULFAMETHOXAZOLE + TRIMETHOPRIM [Concomitant]
  9. BROTIZOLAM                 (BROTIZOLAM) [Concomitant]
  10. POVIDONE IODINE [Concomitant]
  11. LOXONIN                 (LOXOPROFEN SODIUM) [Concomitant]
  12. DICLOFENAC SODIUM [Concomitant]
  13. PL GRAN. [Concomitant]
  14. TRANSAMIN               (TRANEXAMIC ACID) [Concomitant]
  15. AREDIA [Concomitant]
  16. KETOPROFEN [Concomitant]
  17. METHYL SALICYLATE                   (METHYL SALICYLATE) [Concomitant]
  18. CAPSAICIN                    (CAPSAICIN) [Concomitant]
  19. CAMPHOR                (CAMPHOR) [Concomitant]
  20. SENNOSIDE A              (SENNOSIDE A) [Concomitant]
  21. SANCOBA                  (CYANOCOBALAMIN) [Concomitant]

REACTIONS (17)
  - ALANINE AMINOTRANSFERASE INCREASED [None]
  - ASPARTATE AMINOTRANSFERASE INCREASED [None]
  - BLOOD CHLORIDE DECREASED [None]
  - BLOOD LACTATE DEHYDROGENASE INCREASED [None]
  - BLOOD PH INCREASED [None]
  - BLOOD SODIUM DECREASED [None]
  - BRONCHOPNEUMONIA [None]
  - DEHYDRATION [None]
  - ENTEROCOLITIS [None]
  - FAECAL INCONTINENCE [None]
  - GASTROINTESTINAL HYPERMOTILITY [None]
  - INFLAMMATION [None]
  - NASOPHARYNGITIS [None]
  - ORAL CANDIDIASIS [None]
  - PLATELET COUNT DECREASED [None]
  - PSEUDOMONAS INFECTION [None]
  - SPUTUM CULTURE POSITIVE [None]
